FAERS Safety Report 6640983-2 (Version None)
Quarter: 2010Q1

REPORT INFORMATION
  Report Type: 
  Country: None (occurrence: None)
  Receive Date: 20100318
  Receipt Date: 20100312
  Transmission Date: 20100710
  Serious: Yes (Other)
  Sender: FDA-Public Use
  Company Number: A0849989A

PATIENT
  Sex: Male

DRUGS (2)
  1. FLU VACCINE [Suspect]
     Indication: PROPHYLAXIS
     Dosage: 1CC SINGLE DOSE
     Route: 065
     Dates: start: 20090101, end: 20090101
  2. ADVAIR DISKUS 100/50 [Suspect]
     Indication: INFLUENZA
     Dosage: 1PUFF TWICE PER DAY
     Route: 055
     Dates: start: 20100310

REACTIONS (3)
  - DRUG INEFFECTIVE [None]
  - INFLUENZA [None]
  - VACCINATION FAILURE [None]
